FAERS Safety Report 25935111 (Version 1)
Quarter: 2025Q4

REPORT INFORMATION
  Report Type: Spontaneous
  Country: US (occurrence: None)
  Receive Date: 20251016
  Receipt Date: 20251016
  Transmission Date: 20260117
  Serious: Yes (Other)
  Sender: FDA-CTU
  Company Number: None

PATIENT
  Age: 76 Year
  Sex: Female

DRUGS (10)
  1. NEMLUVIO [Suspect]
     Active Substance: NEMOLIZUMAB-ILTO
     Indication: Neurodermatitis
     Dosage: OTHER FREQUENCY : ONCE EVERY 4 WEEKS;?
     Route: 058
     Dates: start: 20250807, end: 20250925
  2. NEMLUVIO [Suspect]
     Active Substance: NEMOLIZUMAB-ILTO
     Indication: Seborrhoeic dermatitis
  3. PROLIA [Concomitant]
     Active Substance: DENOSUMAB
  4. Vitamin D3 50,000 U [Concomitant]
  5. CARVEDILOL [Concomitant]
     Active Substance: CARVEDILOL
  6. Venlafaxine 225mg ER [Concomitant]
  7. CLOBETASOL [Concomitant]
     Active Substance: CLOBETASOL
  8. GABAPENTIN [Concomitant]
     Active Substance: GABAPENTIN
  9. Mulitivitamin [Concomitant]
  10. Ambien 12.5mg CR [Concomitant]

REACTIONS (4)
  - Pruritus [None]
  - Erythema [None]
  - Peripheral swelling [None]
  - Feeling hot [None]

NARRATIVE: CASE EVENT DATE: 20251016
